FAERS Safety Report 8505283-4 (Version None)
Quarter: 2012Q3

REPORT INFORMATION
  Report Type: 
  Country: None (occurrence: None)
  Receive Date: 20120712
  Receipt Date: 20120705
  Transmission Date: 20120928
  Serious: Yes (Other)
  Sender: FDA-Public Use
  Company Number: CA-ASTRAZENECA-2012SE45709

PATIENT
  Age: 79 Year
  Sex: Male

DRUGS (4)
  1. PREVACID [Concomitant]
     Route: 048
     Dates: start: 20110501
  2. CRESTOR [Suspect]
     Route: 048
     Dates: start: 20100601
  3. MICARDIS [Concomitant]
  4. ZYLOPRIM [Concomitant]

REACTIONS (3)
  - MUSCULAR WEAKNESS [None]
  - GAIT DISTURBANCE [None]
  - PAIN IN EXTREMITY [None]
